FAERS Safety Report 13862499 (Version 1)
Quarter: 2017Q3

REPORT INFORMATION
  Report Type: Spontaneous
  Country: US (occurrence: US)
  Receive Date: 20170813
  Receipt Date: 20170813
  Transmission Date: 20171127
  Serious: Yes (Hospitalization, Other)
  Sender: FDA-Public Use
  Company Number: US-PRESTIGE BRANDS -2024566

PATIENT
  Age: 56 Year
  Sex: Female

DRUGS (5)
  1. LYRICA [Concomitant]
     Active Substance: PREGABALIN
  2. UNKNOWN MUSCLE RELAXER [Concomitant]
     Active Substance: UNSPECIFIED INGREDIENT
  3. BC (ASPIRIN\CAFFEINE) [Suspect]
     Active Substance: ASPIRIN\CAFFEINE
     Indication: HEADACHE
     Route: 048
  4. OXYCODONE [Concomitant]
     Active Substance: OXYCODONE
  5. UNKNOWN SEIZURE MEIDCATION [Concomitant]
     Active Substance: UNSPECIFIED INGREDIENT

REACTIONS (14)
  - Hospitalisation [Recovered/Resolved]
  - Abdominal pain upper [Recovered/Resolved]
  - Vomiting [Recovered/Resolved]
  - Headache [Recovered/Resolved]
  - Extra dose administered [Recovered/Resolved]
  - Nausea [Recovered/Resolved]
  - Hot flush [Recovered/Resolved]
  - Fatigue [Recovered/Resolved]
  - Hypophagia [Recovered/Resolved]
  - Gastrointestinal haemorrhage [Recovered/Resolved]
  - Dependence [Not Recovered/Not Resolved]
  - Chills [Recovered/Resolved]
  - Drug dependence [Not Recovered/Not Resolved]
  - Withdrawal syndrome [Recovered/Resolved]
